FAERS Safety Report 9774446 (Version 1)
Quarter: 2013Q4

REPORT INFORMATION
  Report Type: Spontaneous
  Country: US (occurrence: None)
  Receive Date: 20131219
  Receipt Date: 20131219
  Transmission Date: 20140711
  Serious: Yes (Other)
  Sender: FDA-Public Use
  Company Number: None

PATIENT
  Age: 70 Year
  Sex: Female

DRUGS (1)
  1. FORTEO 600 MCG/2.4 ML LILLY [Suspect]
     Indication: OSTEOPOROSIS
     Dates: end: 20131217

REACTIONS (4)
  - Heart rate increased [None]
  - Hypertension [None]
  - Chest pain [None]
  - White blood cell count decreased [None]
